FAERS Safety Report 23375818 (Version 1)
Quarter: 2024Q1

REPORT INFORMATION
  Report Type: Spontaneous
  Country: FR (occurrence: None)
  Receive Date: 20240108
  Receipt Date: 20240108
  Transmission Date: 20240410
  Serious: Yes (Hospitalization)
  Sender: FDA-Public Use
  Company Number: 2024A000345

PATIENT
  Age: 77 Year
  Sex: Male

DRUGS (8)
  1. TICAGRELOR [Suspect]
     Active Substance: TICAGRELOR
     Indication: Acute coronary syndrome
     Dosage: 90 MG MORNING AND EVENING
     Route: 048
     Dates: start: 20231028, end: 20231120
  2. ASPIRIN [Suspect]
     Active Substance: ASPIRIN
     Indication: Acute coronary syndrome
     Route: 048
     Dates: start: 20231028, end: 20231120
  3. EZETIMIBE\ROSUVASTATIN [Suspect]
     Active Substance: EZETIMIBE\ROSUVASTATIN
     Indication: Acute coronary syndrome
     Route: 048
     Dates: start: 20231028, end: 20231120
  4. INFLUVAC [Concomitant]
     Active Substance: INFLUENZA VIRUS VACCINE TRIVALENT TYPE A+B
  5. IOMERON [Concomitant]
     Active Substance: IOMEPROL
     Indication: Angiocardiogram
     Route: 042
     Dates: start: 20231118, end: 20231118
  6. IOMERON [Concomitant]
     Active Substance: IOMEPROL
     Indication: Angiocardiogram
     Route: 042
     Dates: start: 20231116, end: 20231116
  7. IOMERON [Concomitant]
     Active Substance: IOMEPROL
     Indication: Angiocardiogram
     Route: 042
     Dates: start: 20231028, end: 20231028
  8. BISOPROLOL FUMARATE [Concomitant]
     Active Substance: BISOPROLOL FUMARATE

REACTIONS (1)
  - Drug reaction with eosinophilia and systemic symptoms [Recovering/Resolving]

NARRATIVE: CASE EVENT DATE: 20231111
